FAERS Safety Report 6970426-0 (Version None)
Quarter: 2010Q3

REPORT INFORMATION
  Report Type: 
  Country: None (occurrence: None)
  Receive Date: 20100908
  Receipt Date: 20100831
  Transmission Date: 20110219
  Serious: Yes (Death, Hospitalization)
  Sender: FDA-Public Use
  Company Number: GB-GENZYME-POMP-1000914

PATIENT
  Sex: Female
  Weight: 7.9 kg

DRUGS (1)
  1. MYOZYME [Suspect]
     Indication: GLYCOGEN STORAGE DISEASE TYPE II
     Dosage: 200 MG, Q2W
     Route: 042
     Dates: start: 20080814, end: 20100325

REACTIONS (2)
  - OXYGEN SATURATION DECREASED [None]
  - UPPER RESPIRATORY TRACT INFECTION [None]
